FAERS Safety Report 10607178 (Version 2)
Quarter: 2015Q1

REPORT INFORMATION
  Report Type: Spontaneous
  Country: US (occurrence: US)
  Receive Date: 20141125
  Receipt Date: 20150327
  Transmission Date: 20150720
  Serious: Yes (Death, Hospitalization)
  Sender: FDA-Public Use
  Company Number: US-INCYTE CORPORATION-2014IN003522

PATIENT
  Age: 71 Year
  Sex: Male
  Weight: 81.63 kg

DRUGS (1)
  1. JAKAFI [Suspect]
     Active Substance: RUXOLITINIB
     Indication: MYELOFIBROSIS
     Dosage: 10 MG, BID
     Route: 048
     Dates: start: 20130605

REACTIONS (12)
  - Unresponsive to stimuli [Unknown]
  - Confusional state [Unknown]
  - Fatigue [Unknown]
  - Contusion [Unknown]
  - Acute kidney injury [Unknown]
  - Pneumonia [Unknown]
  - Decreased appetite [Unknown]
  - Acute leukaemia [Fatal]
  - Fall [Unknown]
  - Urinary tract infection [Unknown]
  - Asthenia [Unknown]
  - Rhabdomyolysis [Unknown]

NARRATIVE: CASE EVENT DATE: 201410
